FAERS Safety Report 6084643-8 (Version None)
Quarter: 2009Q1

REPORT INFORMATION
  Report Type: 
  Country: None (occurrence: None)
  Receive Date: 20090219
  Receipt Date: 20090212
  Transmission Date: 20090719
  Serious: Yes (Hospitalization, Other)
  Sender: FDA-Public Use
  Company Number: AU-ALLERGAN-0901605US

PATIENT
  Sex: Male
  Weight: 53 kg

DRUGS (7)
  1. BOTOX [Suspect]
     Indication: DRUG USE FOR UNKNOWN INDICATION
     Dosage: UNK, SINGLE
     Dates: start: 20070111, end: 20070111
  2. CALTRATE [Concomitant]
     Indication: OSTEOPOROSIS
  3. COVERSYL [Concomitant]
     Indication: ESSENTIAL HYPERTENSION
  4. FLUTICASONE PROPIONATE [Concomitant]
     Indication: ASTHMA
  5. FOSAMAX [Concomitant]
     Indication: OSTEOPOROSIS
  6. LYRICA [Concomitant]
     Indication: CONVULSION
  7. MAGMIN [Concomitant]
     Indication: HYPOVITAMINOSIS

REACTIONS (2)
  - DYSPHAGIA [None]
  - PNEUMONIA ASPIRATION [None]
